FAERS Safety Report 7864140-7 (Version None)
Quarter: 2011Q4

REPORT INFORMATION
  Report Type: 
  Country: None (occurrence: None)
  Receive Date: 20111028
  Receipt Date: 20111017
  Transmission Date: 20120403
  Serious: Yes (Hospitalization)
  Sender: FDA-Public Use
  Company Number: US-BAYER-2011-067536

PATIENT
  Age: 44 Year
  Sex: Female
  Weight: 85.261 kg

DRUGS (10)
  1. MOTRIN [Concomitant]
     Dosage: UNK UNK, PRN
     Dates: start: 20050101, end: 20100101
  2. IBUPROFEN (ADVIL) [Concomitant]
     Dosage: UNK UNK, PRN
     Dates: start: 20050101, end: 20100101
  3. TOPAMAX [Concomitant]
     Indication: MIGRAINE
     Dosage: 100 MG, UNK
     Dates: start: 20050101, end: 20070622
  4. NEXIUM [Concomitant]
     Dosage: 40 MG, UNK
     Dates: start: 20060803, end: 20080920
  5. YAZ [Suspect]
     Indication: PREMENSTRUAL SYNDROME
  6. LEVOTHYROXINE SODIUM [Concomitant]
     Indication: HYPOTHYROIDISM
     Dosage: UNK
     Dates: start: 19980101
  7. LEVOXYL [Concomitant]
     Indication: HYPOTHYROIDISM
     Dosage: UNK
     Dates: start: 19980101
  8. CIPROFLOXACIN [Concomitant]
     Indication: ANTIBIOTIC THERAPY
     Dosage: 250 MG, UNK
     Dates: start: 20070813
  9. YAZ [Suspect]
     Indication: MENOPAUSAL SYMPTOMS
     Dosage: UNK
     Dates: start: 20070516, end: 20070821
  10. SYNTHROID [Concomitant]
     Indication: HYPOTHYROIDISM
     Dosage: 125 ?G, UNK
     Dates: start: 19980101

REACTIONS (6)
  - MUSCLE SPASMS [None]
  - PAIN IN EXTREMITY [None]
  - ARTERIAL THROMBOSIS LIMB [None]
  - FEAR [None]
  - VASCULAR INJURY [None]
  - FEMORAL ARTERY OCCLUSION [None]
